FAERS Safety Report 15882928 (Version 1)
Quarter: 2019Q1

REPORT INFORMATION
  Report Type: Spontaneous
  Country: US (occurrence: US)
  Receive Date: 20190107
  Receipt Date: 20190107
  Transmission Date: 20190417
  Serious: Yes (Other)
  Sender: FDA-Public Use
  Company Number: None

PATIENT
  Age: 74 Year
  Sex: Female
  Weight: 62.1 kg

DRUGS (8)
  1. PROAIR HFA [Concomitant]
     Active Substance: ALBUTEROL SULFATE
  2. POTASSIUM [Concomitant]
     Active Substance: POTASSIUM
  3. VITAMIN B12 [Concomitant]
     Active Substance: CYANOCOBALAMIN
  4. DULERA [Suspect]
     Active Substance: FORMOTEROL FUMARATE DIHYDRATE\MOMETASONE FUROATE
     Indication: ASTHMA
     Dosage: ?          OTHER STRENGTH:MCG AER AERO;QUANTITY:2 PUFF(S);?
     Route: 055
     Dates: start: 20190104, end: 20190105
  5. PROBIOTICS [Concomitant]
     Active Substance: PROBIOTICS NOS
  6. SYMBICORT [Suspect]
     Active Substance: BUDESONIDE\FORMOTEROL FUMARATE DIHYDRATE
  7. CALCIUM CITRATE [Concomitant]
     Active Substance: CALCIUM CITRATE
  8. MAGNESIUM ASPARTATE [Concomitant]
     Active Substance: MAGNESIUM ASPARTATE

REACTIONS (5)
  - Pain in extremity [None]
  - Product substitution issue [None]
  - Back pain [None]
  - Muscle spasms [None]
  - Chest pain [None]

NARRATIVE: CASE EVENT DATE: 20190104
